FAERS Safety Report 7671888-6 (Version None)
Quarter: 2011Q3

REPORT INFORMATION
  Report Type: 
  Country: None (occurrence: None)
  Receive Date: 20110809
  Receipt Date: 20100524
  Transmission Date: 20111222
  Serious: Yes (Hospitalization)
  Sender: FDA-Public Use
  Company Number: US-GLAXOSMITHKLINE-A0861801A

PATIENT
  Age: 47 Year
  Sex: Male

DRUGS (1)
  1. AVANDIA [Suspect]
     Indication: DIABETES MELLITUS
     Dosage: 4MG PER DAY
     Route: 048
     Dates: end: 20050920

REACTIONS (5)
  - ACUTE MYOCARDIAL INFARCTION [None]
  - APALLIC SYNDROME [None]
  - CARDIAC ARREST [None]
  - COMA [None]
  - NO THERAPEUTIC RESPONSE [None]
